FAERS Safety Report 17550748 (Version 1)
Quarter: 2020Q1

REPORT INFORMATION
  Report Type: Spontaneous
  Country: GB (occurrence: GB)
  Receive Date: 20200317
  Receipt Date: 20200317
  Transmission Date: 20200409
  Serious: Yes (Hospitalization, Other)
  Sender: FDA-Public Use
  Company Number: GB-GLAXOSMITHKLINE-GB2020043558

PATIENT
  Age: 48 Year
  Sex: Male

DRUGS (2)
  1. PIRITON [Suspect]
     Active Substance: CHLORPHENIRAMINE MALEATE
     Indication: PRODUCT USED FOR UNKNOWN INDICATION
     Dosage: UNK
  2. ZYBAN [Suspect]
     Active Substance: BUPROPION HYDROCHLORIDE
     Indication: SMOKING CESSATION THERAPY
     Dosage: UNK

REACTIONS (13)
  - Anxiety [Unknown]
  - Feeling abnormal [Unknown]
  - Skin swelling [Unknown]
  - Emotional distress [Unknown]
  - Panic reaction [Unknown]
  - Suicidal ideation [Unknown]
  - Dizziness [Unknown]
  - Drug interaction [Unknown]
  - Blindness [Unknown]
  - Rash [Unknown]
  - Illiteracy [Unknown]
  - Dyspnoea [Unknown]
  - Hypersensitivity [Unknown]
